FAERS Safety Report 11056240 (Version 2)
Quarter: 2015Q2

REPORT INFORMATION
  Report Type: Spontaneous
  Country: JP (occurrence: JP)
  Receive Date: 20150422
  Receipt Date: 20150428
  Transmission Date: 20150821
  Serious: Yes (Disabling)
  Sender: FDA-Public Use
  Company Number: JP-ASTELLAS-2015JP007897

PATIENT
  Age: 85 Year
  Sex: Female

DRUGS (16)
  1. BETANIS [Suspect]
     Active Substance: MIRABEGRON
     Indication: HYPERTONIC BLADDER
     Route: 048
     Dates: start: 20141212, end: 20150126
  2. HALCION [Suspect]
     Active Substance: TRIAZOLAM
     Indication: INSOMNIA
     Route: 048
     Dates: start: 20140510, end: 20150213
  3. RESTAMIN                           /00000401/ [Concomitant]
     Indication: XERODERMA
     Dosage: PROPER DOSE, TWICE DAILY
     Route: 062
     Dates: start: 20141011, end: 20150213
  4. CARBOCISTEINE [Concomitant]
     Active Substance: CARBOCYSTEINE
     Indication: BRONCHITIS
     Route: 065
     Dates: start: 201501, end: 201501
  5. PRIMPERAN [Concomitant]
     Active Substance: METOCLOPRAMIDE HYDROCHLORIDE
     Indication: BRONCHITIS
     Route: 065
     Dates: start: 201501, end: 201501
  6. PARIET [Concomitant]
     Active Substance: RABEPRAZOLE SODIUM
     Indication: GASTROOESOPHAGEAL REFLUX DISEASE
     Route: 048
     Dates: start: 20140510
  7. FLAGYL 250 [Concomitant]
     Indication: PSEUDOMEMBRANOUS COLITIS
     Dosage: 1 DF, 4 TIMES DAILY, AFTER EACH MEAL AND AT BEDTIME
     Dates: start: 201501, end: 201501
  8. UREPEARL [Concomitant]
     Active Substance: UREA
     Indication: XERODERMA
     Dosage: PROPER DOSE, TWICE DAILY
     Route: 062
     Dates: start: 20141011, end: 20150213
  9. MIYA-BM [Concomitant]
     Active Substance: CLOSTRIDIUM BUTYRICUM SPORES STRAIN M-55
     Indication: PSEUDOMEMBRANOUS COLITIS
     Route: 065
     Dates: start: 201501, end: 201501
  10. GENINAX [Concomitant]
     Active Substance: GARENOXACIN MESYLATE
     Indication: BRONCHITIS
     Route: 065
     Dates: start: 201501, end: 201501
  11. TAMIFLU [Concomitant]
     Active Substance: OSELTAMIVIR PHOSPHATE
     Indication: INFLUENZA
     Route: 065
     Dates: start: 201501, end: 201501
  12. MAOTO [Concomitant]
     Active Substance: UNSPECIFIED INGREDIENT
     Indication: INFLUENZA
     Route: 065
     Dates: start: 201501, end: 201501
  13. ASTAT                              /01326102/ [Concomitant]
     Indication: TINEA INFECTION
     Dosage: PROPER DOSE, TWICE DAILY
     Route: 062
     Dates: start: 20141011, end: 20150213
  14. SILECE [Suspect]
     Active Substance: FLUNITRAZEPAM
     Indication: INSOMNIA
     Route: 048
     Dates: start: 20140510, end: 20150213
  15. MEDICON                            /00048102/ [Concomitant]
     Indication: BRONCHITIS
     Route: 065
     Dates: start: 201501, end: 201501
  16. COCARL [Concomitant]
     Active Substance: ACETAMINOPHEN
     Indication: BRONCHITIS
     Dosage: 2 DF, ONCE DAILY, WHEN HEADACHE DEVELOPED
     Route: 065
     Dates: start: 201501, end: 201501

REACTIONS (1)
  - Neurogenic bladder [Recovering/Resolving]

NARRATIVE: CASE EVENT DATE: 20150126
